FAERS Safety Report 7183450-2 (Version None)
Quarter: 2010Q4

REPORT INFORMATION
  Report Type: 
  Country: None (occurrence: None)
  Receive Date: 20101210
  Receipt Date: 20101125
  Transmission Date: 20110411
  Serious: Yes (Other)
  Sender: FDA-Public Use
  Company Number: AUR-APL-2010-02989

PATIENT
  Age: 43 Year
  Sex: Female

DRUGS (3)
  1. TOPIRAMATE [Suspect]
     Indication: MIGRAINE
     Dosage: 25MG-DAILY
  2. AMITRIPTYLINE [Concomitant]
  3. PROPRANOLOL [Concomitant]

REACTIONS (1)
  - RETINAL DETACHMENT [None]
